FAERS Safety Report 9863611 (Version 2)
Quarter: 2014Q2

REPORT INFORMATION
  Report Type: Spontaneous
  Country: US (occurrence: US)
  Receive Date: 20140203
  Receipt Date: 20140402
  Transmission Date: 20141212
  Serious: Yes (Hospitalization)
  Sender: FDA-Public Use
  Company Number: US-TEVA-459269USA

PATIENT
  Age: 62 Year
  Sex: Male
  Weight: 135.75 kg

DRUGS (8)
  1. MODAFINIL [Suspect]
     Dosage: 400 MILLIGRAM DAILY;
     Route: 048
  2. CHOLESTEROL DRUG [Suspect]
  3. AMLODIPINE BESYLATE [Concomitant]
  4. CALCIUM EFFERVESCENT [Concomitant]
  5. CARVEDILOL [Concomitant]
  6. DIPHENOXYLATE W/ATROPINE SULFATE [Concomitant]
  7. FENOFIBRATE [Concomitant]
  8. CRESTOR [Concomitant]
     Indication: BLOOD CHOLESTEROL

REACTIONS (2)
  - Pulmonary embolism [Recovered/Resolved]
  - Headache [Unknown]
